FAERS Safety Report 10247360 (Version 1)
Quarter: 2014Q2

REPORT INFORMATION
  Report Type: Spontaneous
  Country: FR (occurrence: None)
  Receive Date: 20140617
  Receipt Date: 20140617
  Transmission Date: 20141212
  Serious: Yes (Hospitalization)
  Sender: FDA-Public Use
  Company Number: 7296206

PATIENT
  Age: 80 Year
  Sex: Female

DRUGS (7)
  1. LEVOTHYROX 25 LEVOTHYROXINE SODIUM) (25 MICROGRAM, TABLET) (LEVOTHYROXINE SODIUM) [Suspect]
     Indication: PRODUCT USED FOR UNKNOWN INDICATION
     Route: 048
     Dates: end: 20140401
  2. BASDENE /00834101/(BENZYLTHIOURACIL) (25 MG, TABLET) (BENZYLTHIOURACIL) [Suspect]
     Indication: HYPERTHYROIDISM
     Dosage: 100 MG (50 MG, 2 IN 1 D), ORAL
     Route: 048
     Dates: start: 201401, end: 20140401
  3. APPROVEL (IRBESARTAN) (IRBESARTAN) [Concomitant]
  4. TENORMINE (ATENOLOL) (ATENOLOL) [Concomitant]
  5. FLUDEX (INDAPAMIDE) (INDAPAMIDE) [Concomitant]
  6. DIFFU K (POTASSIUM CHLORIDE) (POTASSIUM CHLORIDE) [Concomitant]
  7. PREVISCAN (PENTOXIFYLLLINE) (PENTOXIFYLLINE) [Concomitant]

REACTIONS (1)
  - Pancreatitis [None]
